FAERS Safety Report 13301838 (Version 2)
Quarter: 2017Q2

REPORT INFORMATION
  Report Type: Report from Study
  Country: US (occurrence: US)
  Receive Date: 20170307
  Receipt Date: 20170421
  Transmission Date: 20170830
  Serious: Yes (Death)
  Sender: FDA-Public Use
  Company Number: US-HLSUS-2017-US-000131

PATIENT
  Age: 52 Year
  Sex: Female

DRUGS (1)
  1. CLOZAPINE. [Suspect]
     Active Substance: CLOZAPINE

REACTIONS (6)
  - Pneumonia [Fatal]
  - Cardiac failure congestive [Unknown]
  - Mental disorder [Unknown]
  - Hypertension [Unknown]
  - Seizure [Unknown]
  - Glucose tolerance impaired [Unknown]
